FAERS Safety Report 5301387-8 (Version None)
Quarter: 2007Q2

REPORT INFORMATION
  Report Type: 
  Country: None (occurrence: None)
  Receive Date: 20070418
  Receipt Date: 20070406
  Transmission Date: 20071010
  Serious: Yes (Other)
  Sender: FDA-Public Use
  Company Number: US-PFIZER INC-2007027631

PATIENT
  Sex: Female
  Weight: 93 kg

DRUGS (1)
  1. XALATAN [Suspect]
     Indication: SENSATION OF PRESSURE
     Route: 047
     Dates: start: 20070331, end: 20070406

REACTIONS (4)
  - CATARACT OPERATION [None]
  - DISCOMFORT [None]
  - EYE IRRITATION [None]
  - EYE PAIN [None]
